FAERS Safety Report 5173896-6 (Version None)
Quarter: 2006Q4

REPORT INFORMATION
  Report Type: 
  Country: None (occurrence: None)
  Receive Date: 20061208
  Receipt Date: 20061208
  Transmission Date: 20070319
  Serious: Yes (Hospitalization)
  Sender: FDA-Public Use
  Company Number: None

PATIENT
  Age: 69 Year
  Sex: Male
  Weight: 56 kg

DRUGS (15)
  1. CETUXIMAB (CETUXIMAB) [Suspect]
     Indication: NON-SMALL CELL LUNG CANCER METASTATIC
     Dosage: SEE IMAGE
     Route: 042
     Dates: start: 20060808, end: 20060808
  2. CETUXIMAB (CETUXIMAB) [Suspect]
     Indication: NON-SMALL CELL LUNG CANCER METASTATIC
     Dosage: SEE IMAGE
     Route: 042
     Dates: start: 20060815, end: 20060815
  3. CETUXIMAB (CETUXIMAB) [Suspect]
     Indication: NON-SMALL CELL LUNG CANCER METASTATIC
     Dosage: SEE IMAGE
     Route: 042
     Dates: start: 20060822, end: 20060822
  4. CETUXIMAB (CETUXIMAB) [Suspect]
     Indication: NON-SMALL CELL LUNG CANCER METASTATIC
     Dosage: SEE IMAGE
     Route: 042
     Dates: start: 20060829, end: 20060829
  5. CETUXIMAB (CETUXIMAB) [Suspect]
     Indication: NON-SMALL CELL LUNG CANCER METASTATIC
     Dosage: SEE IMAGE
     Route: 042
     Dates: start: 20060906, end: 20060906
  6. CETUXIMAB (CETUXIMAB) [Suspect]
     Indication: NON-SMALL CELL LUNG CANCER METASTATIC
     Dosage: SEE IMAGE
     Route: 042
     Dates: start: 20060913, end: 20060913
  7. CETUXIMAB (CETUXIMAB) [Suspect]
     Indication: NON-SMALL CELL LUNG CANCER METASTATIC
     Dosage: SEE IMAGE
     Route: 042
     Dates: start: 20061011, end: 20061011
  8. DOCETAXEL (DOCETAXEL) [Suspect]
     Indication: NON-SMALL CELL LUNG CANCER METASTATIC
     Dosage: 120 MG I.V.
     Route: 042
     Dates: start: 20060808, end: 20060808
  9. DOCETAXEL (DOCETAXEL) [Suspect]
     Indication: NON-SMALL CELL LUNG CANCER METASTATIC
     Dosage: 120 MG I.V.
     Route: 042
     Dates: start: 20060829, end: 20060829
  10. VENTOLIN [Concomitant]
  11. SPIRIVA [Concomitant]
  12. SYMBICORT [Concomitant]
  13. COLACE (DOCUSATE SODIUM) [Concomitant]
  14. SENNA (SENNA ALEXANDRINA) [Concomitant]
  15. SURFAK (DOCUSATE CALCIUM) [Concomitant]

REACTIONS (9)
  - ABDOMINAL PAIN [None]
  - ANOREXIA [None]
  - COGNITIVE DISORDER [None]
  - CONFUSIONAL STATE [None]
  - CONSTIPATION [None]
  - DEPRESSION [None]
  - FATIGUE [None]
  - MOOD ALTERED [None]
  - ORAL INTAKE REDUCED [None]
